FAERS Safety Report 4304967-1 (Version None)
Quarter: 2004Q1

REPORT INFORMATION
  Report Type: 
  Country: None (occurrence: None)
  Receive Date: 20040226
  Receipt Date: 20040122
  Transmission Date: 20041129
  Serious: No
  Sender: FDA-Public Use
  Company Number: US-GLAXOSMITHKLINE-A0494697A

PATIENT
  Sex: Male

DRUGS (1)
  1. WELLBUTRIN XL [Suspect]
     Dosage: 300MG PER DAY
     Route: 048
     Dates: start: 20040108, end: 20040122

REACTIONS (6)
  - ANXIETY [None]
  - DRY MOUTH [None]
  - DYSPEPSIA [None]
  - FLUSHING [None]
  - HEADACHE [None]
  - INSOMNIA [None]
